FAERS Safety Report 5952659-5 (Version None)
Quarter: 2008Q4

REPORT INFORMATION
  Report Type: 
  Country: None (occurrence: None)
  Receive Date: 20081027
  Receipt Date: 20080730
  Transmission Date: 20090506
  Serious: No
  Sender: FDA-Public Use
  Company Number: PYLE-2008-015 F-UP

PATIENT
  Age: 84 Year
  Sex: Female

DRUGS (10)
  1. PYLERA [Suspect]
     Indication: HELICOBACTER INFECTION
     Dosage: 3 CAPSULES QID ORAL
     Route: 048
     Dates: start: 20080507, end: 20080517
  2. LEVOTHYROXINE SODIUM [Concomitant]
  3. ARIMIDEX [Concomitant]
  4. ALIGN (BIFIDOBACTER INFANTS) [Concomitant]
  5. ASCORBIC ACID [Concomitant]
  6. FISH OIL [Concomitant]
  7. VITAMIN B1 TAB [Concomitant]
  8. CALCIUM [Concomitant]
  9. ASPIRIN [Concomitant]
  10. NEXIUM [Concomitant]

REACTIONS (3)
  - DRUG INEFFECTIVE [None]
  - FAECES DISCOLOURED [None]
  - FEELING DRUNK [None]
